FAERS Safety Report 5342768-6 (Version None)
Quarter: 2007Q2

REPORT INFORMATION
  Report Type: 
  Country: None (occurrence: None)
  Receive Date: 20070601
  Receipt Date: 20070522
  Transmission Date: 20071010
  Serious: Yes (Other)
  Sender: FDA-Public Use
  Company Number: US-PFIZER INC-2007042036

PATIENT
  Sex: Female
  Weight: 69.09 kg

DRUGS (8)
  1. LIPITOR [Suspect]
     Indication: BLOOD CHOLESTEROL INCREASED
     Dates: start: 19990101, end: 20061001
  2. ATENOLOL [Concomitant]
  3. TRIAMTERENE AND HYDROCHLOROTHIAZIDE [Concomitant]
  4. ACETYLSALICYLIC ACID SRT [Concomitant]
  5. DETROL [Concomitant]
  6. THYROID TAB [Concomitant]
  7. FOSAMAX [Concomitant]
  8. ESTRING [Concomitant]

REACTIONS (6)
  - BLOOD CHOLESTEROL INCREASED [None]
  - BLOOD CREATINE PHOSPHOKINASE INCREASED [None]
  - BLOOD TRIGLYCERIDES INCREASED [None]
  - CEREBROVASCULAR ACCIDENT [None]
  - DIPLOPIA [None]
  - MYALGIA [None]
